FAERS Safety Report 8298195-5 (Version None)
Quarter: 2012Q2

REPORT INFORMATION
  Report Type: 
  Country: None (occurrence: None)
  Receive Date: 20120419
  Receipt Date: 20120307
  Transmission Date: 20120825
  Serious: No
  Sender: FDA-Public Use
  Company Number: US-BRISTOL-MYERS SQUIBB COMPANY-16441396

PATIENT
  Age: 71 Year
  Sex: Male

DRUGS (1)
  1. YERVOY [Suspect]
     Dosage: LAST TREATMENT ON 07MAR2012 NO OF INF:4

REACTIONS (4)
  - DRY SKIN [None]
  - DYSPNOEA [None]
  - SKIN EXFOLIATION [None]
  - PRURITUS [None]
